FAERS Safety Report 7543519-7 (Version None)
Quarter: 2011Q2

REPORT INFORMATION
  Report Type: 
  Country: None (occurrence: None)
  Receive Date: 20110613
  Receipt Date: 20011129
  Transmission Date: 20111010
  Serious: Yes (Hospitalization)
  Sender: FDA-Public Use
  Company Number: PHBS2001AT12010

PATIENT
  Sex: Female
  Weight: 85 kg

DRUGS (4)
  1. DICLOFENAC SODIUM [Concomitant]
     Dosage: UNKNOWN
  2. GYNODIAN-DEPOT [Concomitant]
     Dosage: UNKNOWN
  3. DIOVAN HCT [Suspect]
     Indication: HYPERTENSION
     Dosage: UNKNOWN
     Route: 048
     Dates: start: 19981020, end: 19990105
  4. NIF-TEN ^ZENECA^ [Concomitant]
     Dosage: UNKNOWN

REACTIONS (4)
  - TRANSAMINASES INCREASED [None]
  - ALANINE AMINOTRANSFERASE INCREASED [None]
  - GAMMA-GLUTAMYLTRANSFERASE INCREASED [None]
  - ASPARTATE AMINOTRANSFERASE INCREASED [None]
